FAERS Safety Report 25343559 (Version 1)
Quarter: 2025Q2

REPORT INFORMATION
  Report Type: Spontaneous
  Country: US (occurrence: US)
  Receive Date: 20250521
  Receipt Date: 20250521
  Transmission Date: 20250717
  Serious: Yes (Hospitalization)
  Sender: ELI LILLY AND COMPANY
  Company Number: US-ELI_LILLY_AND_COMPANY-US202505012894

PATIENT
  Age: 60 Year
  Sex: Female

DRUGS (10)
  1. ZEPBOUND [Suspect]
     Active Substance: TIRZEPATIDE
     Indication: Pulmonary embolism
     Dosage: 2.5 MG, WEEKLY (1/W)
     Route: 065
     Dates: start: 20250323, end: 20250330
  2. ZEPBOUND [Suspect]
     Active Substance: TIRZEPATIDE
     Indication: Pulmonary embolism
     Dosage: 2.5 MG, WEEKLY (1/W)
     Route: 065
     Dates: start: 20250323, end: 20250330
  3. ZEPBOUND [Suspect]
     Active Substance: TIRZEPATIDE
     Indication: Pulmonary embolism
     Dosage: 2.5 MG, WEEKLY (1/W)
     Route: 065
     Dates: start: 20250323, end: 20250330
  4. ZEPBOUND [Suspect]
     Active Substance: TIRZEPATIDE
     Indication: Pulmonary embolism
     Dosage: 2.5 MG, WEEKLY (1/W)
     Route: 065
     Dates: start: 20250323, end: 20250330
  5. ZEPBOUND [Suspect]
     Active Substance: TIRZEPATIDE
     Indication: Deep vein thrombosis
  6. ZEPBOUND [Suspect]
     Active Substance: TIRZEPATIDE
     Indication: Deep vein thrombosis
  7. ZEPBOUND [Suspect]
     Active Substance: TIRZEPATIDE
     Indication: Deep vein thrombosis
  8. ZEPBOUND [Suspect]
     Active Substance: TIRZEPATIDE
     Indication: Deep vein thrombosis
  9. PAROXETINE [Concomitant]
     Active Substance: PAROXETINE
     Indication: Menopausal symptoms
  10. OMEPRAZOLE [Concomitant]
     Active Substance: OMEPRAZOLE
     Indication: Gastrooesophageal reflux disease

REACTIONS (4)
  - Fatigue [Recovering/Resolving]
  - Visual impairment [Recovering/Resolving]
  - Dyspnoea [Recovering/Resolving]
  - Off label use [Unknown]
